FAERS Safety Report 5959869-1 (Version None)
Quarter: 2008Q4

REPORT INFORMATION
  Report Type: 
  Country: None (occurrence: None)
  Receive Date: 20081120
  Receipt Date: 20081118
  Transmission Date: 20090506
  Serious: Yes (Death)
  Sender: FDA-Public Use
  Company Number: AU-WYE-G02587008

PATIENT

DRUGS (1)
  1. TORISEL [Suspect]
     Dosage: UNKNOWN

REACTIONS (1)
  - DEATH [None]
